FAERS Safety Report 24293307 (Version 1)
Quarter: 2024Q3

REPORT INFORMATION
  Report Type: Spontaneous
  Country: US (occurrence: None)
  Receive Date: 20240906
  Receipt Date: 20240906
  Transmission Date: 20241017
  Serious: No
  Sender: DOMPE FARMACEUTICI
  Company Number: US-FARMAPROD-202308-202312-3800

PATIENT
  Age: 73 Year
  Sex: Female

DRUGS (8)
  1. OXERVATE [Suspect]
     Active Substance: CENEGERMIN-BKBJ
     Indication: Neurotrophic keratopathy
     Route: 047
     Dates: start: 20221109, end: 20230102
  2. OXERVATE [Suspect]
     Active Substance: CENEGERMIN-BKBJ
     Indication: Hypoaesthesia eye
     Route: 047
     Dates: start: 20230405, end: 20230519
  3. OXERVATE [Suspect]
     Active Substance: CENEGERMIN-BKBJ
     Route: 047
     Dates: start: 20231220
  4. PATADAY [Concomitant]
     Active Substance: OLOPATADINE HYDROCHLORIDE
  5. CEQUA [Concomitant]
     Active Substance: CYCLOSPORINE
  6. POVIDONE/IODINE [Concomitant]
  7. JARDIANCE [Concomitant]
     Active Substance: EMPAGLIFLOZIN
  8. TAZVERIK [Concomitant]
     Active Substance: TAZEMETOSTAT HYDROBROMIDE

REACTIONS (4)
  - Nasopharyngitis [Unknown]
  - Pyrexia [Unknown]
  - Oropharyngeal pain [Unknown]
  - Cough [Unknown]

NARRATIVE: CASE EVENT DATE: 20231201
